FAERS Safety Report 8784754 (Version 1)
Quarter: 2012Q4

REPORT INFORMATION
  Report Type: 
  Country: MX (occurrence: MX)
  Receive Date: 20120914
  Receipt Date: 20120914
  Transmission Date: 20130627
  Serious: Yes (Death, Hospitalization)
  Sender: FDA-Public Use
  Company Number: MX-BRISTOL-MYERS SQUIBB COMPANY-16957334

PATIENT
  Sex: Female

DRUGS (7)
  1. CASPOFUNGIN ACETATE [Suspect]
  2. FLUCONAZOLE [Suspect]
  3. AMIKACIN SULFATE [Suspect]
  4. CIPROFLOXACIN [Suspect]
  5. AMPHOTERICIN B [Suspect]
  6. MEROPENEM [Suspect]
  7. VANCOMYCIN [Suspect]

REACTIONS (2)
  - Death [Fatal]
  - Candidiasis [Unknown]
